FAERS Safety Report 25073002 (Version 1)
Quarter: 2025Q1

REPORT INFORMATION
  Report Type: Spontaneous
  Country: GB (occurrence: GB)
  Receive Date: 20250313
  Receipt Date: 20250313
  Transmission Date: 20250408
  Serious: Yes (Other)
  Sender: ROCHE
  Company Number: GB-ROCHE-10000226247

PATIENT

DRUGS (2)
  1. ACTEMRA [Suspect]
     Active Substance: TOCILIZUMAB
     Indication: Product used for unknown indication
     Route: 065
  2. RITUXAN [Suspect]
     Active Substance: RITUXIMAB
     Indication: Product used for unknown indication
     Route: 065
     Dates: start: 2011

REACTIONS (6)
  - Infusion related reaction [Unknown]
  - Therapy non-responder [Unknown]
  - Urticaria [Unknown]
  - Rash [Unknown]
  - Unresponsive to stimuli [Unknown]
  - Body temperature increased [Unknown]
